FAERS Safety Report 20034739 (Version 1)
Quarter: 2021Q4

REPORT INFORMATION
  Report Type: Spontaneous
  Country: CN (occurrence: CN)
  Receive Date: 20211104
  Receipt Date: 20211104
  Transmission Date: 20220303
  Serious: Yes (Hospitalization, Other)
  Sender: FDA-Public Use
  Company Number: CN-PFIZER INC-202101450533

PATIENT
  Age: 7 Year
  Sex: Male

DRUGS (5)
  1. CYTARABINE [Suspect]
     Active Substance: CYTARABINE
     Indication: Lymphoma
     Dosage: 2520 MG, 1X/DAY
     Route: 041
     Dates: start: 20211001, end: 20211005
  2. ETOPOSIDE [Concomitant]
     Active Substance: ETOPOSIDE
     Indication: Lymphoma
     Dosage: 0.168 G, 1X/DAY
     Route: 041
     Dates: start: 20211001, end: 20211005
  3. SODIUM CHLORIDE [Concomitant]
     Active Substance: SODIUM CHLORIDE
     Indication: Vehicle solution use
     Dosage: 315 ML, 1X/DAY
     Route: 041
     Dates: start: 20211001, end: 20211005
  4. SODIUM CHLORIDE [Concomitant]
     Active Substance: SODIUM CHLORIDE
     Dosage: 675 ML, 1X/DAY
     Route: 041
     Dates: start: 20211001, end: 20211005
  5. ONDANSETRON HYDROCHLORIDE [Concomitant]
     Active Substance: ONDANSETRON HYDROCHLORIDE
     Indication: Lymphoma
     Dosage: 4 MG, 1X/DAY
     Route: 041
     Dates: start: 20211001, end: 20211005

REACTIONS (5)
  - Myalgia [Recovering/Resolving]
  - Rash pruritic [Recovering/Resolving]
  - Erythema [Unknown]
  - Pruritus [Recovering/Resolving]
  - Macule [Unknown]

NARRATIVE: CASE EVENT DATE: 20211001
